FAERS Safety Report 4439337-9 (Version None)
Quarter: 2004Q3

REPORT INFORMATION
  Report Type: 
  Country: None (occurrence: None)
  Receive Date: 20040831
  Receipt Date: 20040819
  Transmission Date: 20050211
  Serious: Yes (Hospitalization)
  Sender: FDA-Public Use
  Company Number: 04H-163-0271184-00

PATIENT
  Age: 44 Year
  Sex: Female

DRUGS (1)
  1. MARCAINE SPINAL INJECTION (BUPIVACAINE/DEXTROSE) [Suspect]
     Indication: HAEMORRHOID OPERATION
     Dosage: INTRASPINAL
     Route: 024

REACTIONS (2)
  - DIFFICULTY IN WALKING [None]
  - DRUG EFFECT INCREASED [None]
